FAERS Safety Report 16536354 (Version 1)
Quarter: 2019Q3

REPORT INFORMATION
  Report Type: Spontaneous
  Country: US (occurrence: US)
  Receive Date: 20190705
  Receipt Date: 20190705
  Transmission Date: 20191004
  Serious: No
  Sender: FDA-Public Use
  Company Number: US-TEVA-2019-US-1069129

PATIENT

DRUGS (1)
  1. TADAFIL [Suspect]
     Active Substance: TADALAFIL
     Indication: BENIGN PROSTATIC HYPERPLASIA

REACTIONS (6)
  - Product substitution issue [Unknown]
  - Urinary hesitation [Unknown]
  - Micturition urgency [Not Recovered/Not Resolved]
  - Dysuria [Unknown]
  - Nasal congestion [Unknown]
  - Drug ineffective [Unknown]
